FAERS Safety Report 5749202-2 (Version None)
Quarter: 2008Q2

REPORT INFORMATION
  Report Type: 
  Country: None (occurrence: None)
  Receive Date: 20080527
  Receipt Date: 20080516
  Transmission Date: 20081010
  Serious: Yes (Other)
  Sender: FDA-Public Use
  Company Number: US-WYE-H04232408

PATIENT
  Sex: Female

DRUGS (3)
  1. ETANERCEPT [Interacting]
     Indication: RHEUMATOID ARTHRITIS
     Route: 058
     Dates: start: 20021209
  2. AMIODARONE [Suspect]
     Dosage: UNKNOWN
     Dates: start: 20080509
  3. METHOTREXATE [Concomitant]

REACTIONS (7)
  - ATRIAL FIBRILLATION [None]
  - DRUG INTERACTION [None]
  - INJECTION SITE ERYTHEMA [None]
  - INJECTION SITE PRURITUS [None]
  - INJECTION SITE REACTION [None]
  - INJECTION SITE SWELLING [None]
  - INJECTION SITE WARMTH [None]
